FAERS Safety Report 4398698-X (Version None)
Quarter: 2004Q3

REPORT INFORMATION
  Report Type: 
  Country: None (occurrence: None)
  Receive Date: 20040712
  Receipt Date: 20040701
  Transmission Date: 20050211
  Serious: Yes (Life-Threatening, Hospitalization)
  Sender: FDA-Public Use
  Company Number: 04P-144-0260652-00

PATIENT
  Age: 42 Year
  Sex: Male

DRUGS (4)
  1. KALETRA [Suspect]
     Indication: HIV INFECTION
     Dosage: 3 CAPSULE, 2 IN 1 D, PER ORAL
     Route: 048
     Dates: start: 20040104
  2. INSULIN [Concomitant]
  3. ATENOLOL [Concomitant]
  4. ASPIRIN [Concomitant]

REACTIONS (2)
  - ACUTE MYOCARDIAL INFARCTION [None]
  - CARDIOGENIC SHOCK [None]
